FAERS Safety Report 24720359 (Version 2)
Quarter: 2025Q1

REPORT INFORMATION
  Report Type: Spontaneous
  Country: FR (occurrence: FR)
  Receive Date: 20241211
  Receipt Date: 20250108
  Transmission Date: 20250409
  Serious: Yes (Hospitalization)
  Sender: ROCHE
  Company Number: FR-002147023-NVSC2024FR233521

PATIENT
  Age: 25 Year
  Sex: Female
  Weight: 90 kg

DRUGS (4)
  1. XOLAIR [Suspect]
     Active Substance: OMALIZUMAB
     Indication: Chronic spontaneous urticaria
     Dosage: 150 MILLIGRAM PER MILLILITRE, Q4W (TWO INJECTIONS EVERY 4 WEEKS)
     Route: 058
     Dates: start: 20230223, end: 202309
  2. XOLAIR [Suspect]
     Active Substance: OMALIZUMAB
     Dosage: 150 MILLIGRAM PER MILLILITRE, Q5W (TWO INJECTIONS EVERY 5 WEEKS)
     Route: 058
     Dates: start: 202309
  3. XOLAIR [Suspect]
     Active Substance: OMALIZUMAB
     Route: 058
  4. XOLAIR [Suspect]
     Active Substance: OMALIZUMAB
     Route: 058
     Dates: start: 202405

REACTIONS (4)
  - Oropharyngeal pain [Unknown]
  - Cellulitis pharyngeal [Recovered/Resolved]
  - Off label use [Unknown]
  - Cellulitis pharyngeal [Recovered/Resolved]

NARRATIVE: CASE EVENT DATE: 20240501
